FAERS Safety Report 10920991 (Version 1)
Quarter: 2015Q1

REPORT INFORMATION
  Report Type: Spontaneous
  Country: US (occurrence: None)
  Receive Date: 20150313
  Receipt Date: 20150313
  Transmission Date: 20150721
  Serious: Yes (Disabling)
  Sender: FDA-Public Use
  Company Number: None

PATIENT
  Age: 54 Year
  Sex: Female
  Weight: 58.97 kg

DRUGS (5)
  1. GRAPE SEED EXTRACT [Concomitant]
     Active Substance: GRAPE SEED EXTRACT
  2. NON-SYNTHETIC MULTIPLE VITAMINS [Concomitant]
  3. CIPROFLOXACIN. [Suspect]
     Active Substance: CIPROFLOXACIN
     Indication: URINARY TRACT INFECTION
     Dosage: 2 PILLS TWICE DAILY
     Dates: start: 20150309, end: 20150309
  4. XANAX [Concomitant]
     Active Substance: ALPRAZOLAM
  5. TRAZODONE [Concomitant]
     Active Substance: TRAZODONE HYDROCHLORIDE

REACTIONS (2)
  - Diarrhoea [None]
  - Hypoaesthesia [None]

NARRATIVE: CASE EVENT DATE: 20150309
